FAERS Safety Report 4819910-6 (Version None)
Quarter: 2005Q4

REPORT INFORMATION
  Report Type: 
  Country: None (occurrence: None)
  Receive Date: 20051102
  Receipt Date: 20051021
  Transmission Date: 20060501
  Serious: Yes (Hospitalization)
  Sender: FDA-Public Use
  Company Number: 151-20785-05100092

PATIENT
  Age: 81 Year
  Sex: Male

DRUGS (12)
  1. THALOMID [Suspect]
     Indication: MULTIPLE MYELOMA
     Dosage: 100 MG, QD, ORAL
     Route: 048
     Dates: start: 20050711, end: 20050822
  2. MODOPAR (MADOPAR) [Suspect]
     Indication: PARKINSONISM
     Dosage: 250 MG, QD, ORAL
     Route: 048
     Dates: start: 20050815, end: 20050817
  3. DEXAMETHASONE [Concomitant]
  4. BISOPROLOL FUMARATE [Concomitant]
  5. COVERSUM (PERINDOPRIL) [Concomitant]
  6. SORBIDILAT (ISOSORBIDE DINITRATE) [Concomitant]
  7. TOREM (TORASEMIDE) [Concomitant]
  8. ASPIRIN (ACETYLASALICYLIIC ACID) [Concomitant]
  9. PRADIF (TAMSULOSIN HYDROCHLORIDE) [Concomitant]
  10. FOLVITE (FOLIC ACID) [Concomitant]
  11. DOLPRONE (PARACETAMOL) [Concomitant]
  12. VITAMIN B12 [Concomitant]

REACTIONS (19)
  - CONCUSSION [None]
  - ENURESIS [None]
  - FALL [None]
  - HAEMATOCHEZIA [None]
  - HAEMOGLOBIN DECREASED [None]
  - LEUKOPENIA [None]
  - OESOPHAGEAL ULCER [None]
  - ORTHOSTATIC HYPOTENSION [None]
  - PARKINSONISM [None]
  - PERFORMANCE STATUS DECREASED [None]
  - PLEURAL EFFUSION [None]
  - PNEUMONIA ASPIRATION [None]
  - PNEUMONIA STREPTOCOCCAL [None]
  - REFLUX OESOPHAGITIS [None]
  - RETROGRADE AMNESIA [None]
  - SEPSIS [None]
  - STREPTOCOCCAL INFECTION [None]
  - SYNCOPE [None]
  - THROMBOCYTOPENIA [None]
